FAERS Safety Report 10695437 (Version 3)
Quarter: 2015Q2

REPORT INFORMATION
  Report Type: Spontaneous
  Country: FR (occurrence: FR)
  Receive Date: 20150107
  Receipt Date: 20150420
  Transmission Date: 20150821
  Serious: Yes (Other)
  Sender: FDA-Public Use
  Company Number: FR-009507513-1501FRA000672

PATIENT
  Age: 47 Year
  Sex: Male

DRUGS (11)
  1. METHYLPREDNISOLONE SODIUM SUCCINATE. [Suspect]
     Active Substance: METHYLPREDNISOLONE SODIUM SUCCINATE
     Dosage: 60 MG, QD
     Route: 042
     Dates: start: 20140915
  2. METHYLPREDNISOLONE SODIUM SUCCINATE. [Suspect]
     Active Substance: METHYLPREDNISOLONE SODIUM SUCCINATE
     Indication: PREMEDICATION
     Dosage: 60 MG, QD
     Route: 042
     Dates: start: 20140623
  3. VINCRISTINE SULFATE. [Suspect]
     Active Substance: VINCRISTINE SULFATE
     Indication: BRAIN NEOPLASM
     Dosage: 1.4 MG/M2, QD
     Route: 042
     Dates: start: 20140630
  4. VINCRISTINE SULFATE. [Suspect]
     Active Substance: VINCRISTINE SULFATE
     Dosage: 1.4 MG/M2, QD
     Route: 042
     Dates: start: 20140915
  5. LOMUSTINE. [Suspect]
     Active Substance: LOMUSTINE
     Dosage: 110 MG/M2, QD
     Route: 048
     Dates: start: 20140915
  6. ONDANSETRON HYDROCHLORIDE. [Suspect]
     Active Substance: ONDANSETRON HYDROCHLORIDE
     Dosage: 8 MG, QD
     Route: 042
     Dates: start: 20140915
  7. PROCARBAZINE [Suspect]
     Active Substance: PROCARBAZINE
     Indication: BRAIN NEOPLASM
     Dosage: 60 MG/M2, QD
     Route: 048
     Dates: start: 20140630
  8. EMEND [Suspect]
     Active Substance: APREPITANT
     Indication: PREMEDICATION
     Dosage: 125 MG, UNK
     Route: 048
     Dates: start: 20140623
  9. EMEND [Suspect]
     Active Substance: APREPITANT
     Dosage: 125 MG, UNK
     Route: 048
     Dates: start: 20140915
  10. ONDANSETRON HYDROCHLORIDE. [Suspect]
     Active Substance: ONDANSETRON HYDROCHLORIDE
     Indication: PREMEDICATION
     Dosage: 8 MG, QD
     Route: 042
     Dates: start: 20140623, end: 20140623
  11. LOMUSTINE. [Suspect]
     Active Substance: LOMUSTINE
     Indication: BRAIN NEOPLASM
     Dosage: 110 MG/M2, QD
     Route: 048
     Dates: start: 20140623

REACTIONS (1)
  - Hepatic enzyme increased [Recovered/Resolved]

NARRATIVE: CASE EVENT DATE: 20140912
